FAERS Safety Report 16460822 (Version 1)
Quarter: 2019Q2

REPORT INFORMATION
  Report Type: Spontaneous
  Country: HU (occurrence: HU)
  Receive Date: 20190620
  Receipt Date: 20190620
  Transmission Date: 20190711
  Serious: Yes (Hospitalization, Other)
  Sender: FDA-Public Use
  Company Number: PHHY2019HU140591

PATIENT
  Age: 14 Year
  Sex: Female

DRUGS (1)
  1. AMOXICILLIN+CLAVULANIC ACID [Suspect]
     Active Substance: AMOXICILLIN\CLAVULANIC ACID
     Indication: UPPER RESPIRATORY TRACT INFECTION
     Route: 048

REACTIONS (6)
  - Upper respiratory tract infection [Unknown]
  - Genital ulceration [Recovered/Resolved]
  - Bacterial infection [Unknown]
  - Ulcer [Recovered/Resolved]
  - Pain [Recovered/Resolved]
  - Condition aggravated [Unknown]
